FAERS Safety Report 7636358-X (Version None)
Quarter: 2011Q3

REPORT INFORMATION
  Report Type: 
  Country: None (occurrence: None)
  Receive Date: 20110726
  Receipt Date: 20110719
  Transmission Date: 20111222
  Serious: Yes (Hospitalization)
  Sender: FDA-Public Use
  Company Number: DE-GLAXOSMITHKLINE-B0698589A

PATIENT
  Age: 63 Year
  Sex: Male

DRUGS (5)
  1. ARGATROBAN [Concomitant]
     Route: 065
  2. REFLUDAN [Concomitant]
     Route: 065
  3. ARIXTRA [Suspect]
     Dosage: 7.5MG PER DAY
     Route: 058
  4. HEPARIN SODIUM [Suspect]
     Route: 042
  5. ENOXAPARIN SODIUM [Concomitant]
     Dosage: 40MG PER DAY
     Route: 058

REACTIONS (2)
  - CONDITION AGGRAVATED [None]
  - THROMBOCYTOPENIA [None]
